FAERS Safety Report 25483331 (Version 2)
Quarter: 2025Q3

REPORT INFORMATION
  Report Type: Spontaneous
  Country: US (occurrence: US)
  Receive Date: 20250626
  Receipt Date: 20250916
  Transmission Date: 20251020
  Serious: Yes (Hospitalization)
  Sender: PFIZER
  Company Number: US-PFIZER INC-PV202500075670

PATIENT
  Age: 76 Year
  Sex: Female

DRUGS (2)
  1. IBRANCE [Suspect]
     Active Substance: PALBOCICLIB
     Dates: start: 202505
  2. IBRANCE [Suspect]
     Active Substance: PALBOCICLIB
     Dates: start: 20250822

REACTIONS (6)
  - Radiation injury [Unknown]
  - Diarrhoea [Unknown]
  - Fatigue [Unknown]
  - Taste disorder [Unknown]
  - Muscular weakness [Not Recovered/Not Resolved]
  - Peripheral swelling [Recovering/Resolving]

NARRATIVE: CASE EVENT DATE: 20250623
